FAERS Safety Report 11201346 (Version 1)
Quarter: 2015Q2

REPORT INFORMATION
  Report Type: Spontaneous
  Country: US (occurrence: None)
  Receive Date: 20150617
  Receipt Date: 20150617
  Transmission Date: 20150821
  Serious: No
  Sender: FDA-Public Use
  Company Number: None

PATIENT
  Sex: Male

DRUGS (1)
  1. RISPERDAL [Suspect]
     Active Substance: RISPERIDONE

REACTIONS (8)
  - Weight increased [None]
  - Breast enlargement [None]
  - Cardiovascular disorder [None]
  - Blood triglycerides increased [None]
  - Blood cholesterol increased [None]
  - Blood glucose abnormal [None]
  - Hypertension [None]
  - Eye disorder [None]
